FAERS Safety Report 8184571-8 (Version None)
Quarter: 2012Q1

REPORT INFORMATION
  Report Type: 
  Country: None (occurrence: None)
  Receive Date: 20120305
  Receipt Date: 20120222
  Transmission Date: 20120608
  Serious: Yes (Death, Hospitalization)
  Sender: FDA-Public Use
  Company Number: JP-MERCK-1111USA03778

PATIENT
  Age: 84 Year
  Sex: Male

DRUGS (11)
  1. JUVELA N [Concomitant]
     Dosage: AFTER THE SUPPER IN DAYTIME IN THE MORNING
     Route: 048
  2. JANUVIA [Suspect]
     Route: 048
     Dates: start: 20111012, end: 20111124
  3. GLYBURIDE [Concomitant]
     Dosage: AFTER THE BREAKFAST
     Route: 048
  4. MECOBALAMIN [Concomitant]
     Dosage: AFTER THE SUPPER IN DAYTIME IN THE MORNING
     Route: 048
  5. AMARYL [Suspect]
     Route: 048
     Dates: start: 20111012, end: 20111124
  6. LIVALO [Concomitant]
     Dosage: AFTER THE BREAKFAST
     Route: 048
  7. KARIKUROMONE [Concomitant]
     Dosage: AFTER THE SUPPER IN DAYTIME IN THE MORNING 150(UNDER 1000 UNIT)
     Route: 048
  8. PLAVIX [Concomitant]
     Dosage: AFTER THE BREAKFAST
     Route: 048
     Dates: start: 20110826
  9. SEPAMIT-R [Concomitant]
     Dosage: AFTER THE SUPPER IN THE MORNING
     Route: 048
  10. NIKORANMART [Concomitant]
     Dosage: AFTER THE SUPPER IN THE MORNING
     Route: 048
     Dates: start: 20110826
  11. ASPIRIN [Concomitant]
     Dosage: AFTER THE BREAKFAST
     Route: 048
     Dates: start: 20110729

REACTIONS (2)
  - DEATH [None]
  - INTERSTITIAL LUNG DISEASE [None]
